FAERS Safety Report 8381137-1 (Version None)
Quarter: 2012Q2

REPORT INFORMATION
  Report Type: 
  Country: None (occurrence: None)
  Receive Date: 20120522
  Receipt Date: 20111123
  Transmission Date: 20120825
  Serious: Yes (Hospitalization)
  Sender: FDA-Public Use
  Company Number: 2011-07510

PATIENT
  Age: 79 Year
  Sex: Female

DRUGS (5)
  1. ASPIRIN [Concomitant]
  2. SIMVASTATIN [Concomitant]
  3. PROCARDIA XL [Concomitant]
  4. TENORMIN [Concomitant]
  5. THERACYS [Suspect]
     Indication: BLADDER CANCER
     Dosage: I. VES. BLADDER
     Dates: start: 20100123, end: 20100623

REACTIONS (9)
  - ASTHENIA [None]
  - BOVINE TUBERCULOSIS [None]
  - METABOLIC ENCEPHALOPATHY [None]
  - VOMITING [None]
  - DEHYDRATION [None]
  - HYPOKALAEMIA [None]
  - SEPSIS [None]
  - INCORRECT DOSE ADMINISTERED [None]
  - URINARY TRACT INFECTION ENTEROCOCCAL [None]
